FAERS Safety Report 13151337 (Version 1)
Quarter: 2017Q1

REPORT INFORMATION
  Report Type: Spontaneous
  Country: US (occurrence: US)
  Receive Date: 20170125
  Receipt Date: 20170125
  Transmission Date: 20170428
  Serious: No
  Sender: FDA-Public Use
  Company Number: US-KADMON PHARMACEUTICALS, LLC-KAD201602-000507

PATIENT
  Age: 59 Year
  Sex: Male
  Weight: 93.89 kg

DRUGS (9)
  1. FLECAINIDE 100 MG [Concomitant]
     Active Substance: FLECAINIDE
     Indication: ATRIAL FIBRILLATION
     Route: 048
  2. VITAMIN D [Concomitant]
     Active Substance: CHOLECALCIFEROL
     Indication: BONE GRAFT
  3. XARELTO [Concomitant]
     Active Substance: RIVAROXABAN
     Indication: ATRIAL FIBRILLATION
  4. BABY ASPIRIN [Concomitant]
     Active Substance: ASPIRIN
  5. VIEKIRA PAK [Suspect]
     Active Substance: DASABUVIR\OMBITASVIR\PARITAPREVIR\RITONAVIR
     Indication: HEPATITIS C
     Dosage: THREE TABLETS IN THE MORNING OF 12.5 MG/ 75 MG/ 50 MG AND ONE 270.3 MG TABLET AT NIGHT
     Dates: start: 20151130
  6. DILTIAZEM HCL SR [Concomitant]
     Indication: ATRIAL FIBRILLATION
  7. VITAMIN D [Concomitant]
     Active Substance: CHOLECALCIFEROL
     Indication: TOOTH EXTRACTION
  8. RIBASPHERE [Suspect]
     Active Substance: RIBAVIRIN
     Indication: HEPATITIS C
     Dosage: THREE 200 MG TABLETS TWICE A DAY IN THE MORNING AND AT NIGHT
     Dates: start: 20151130
  9. RIBASPHERE [Suspect]
     Active Substance: RIBAVIRIN
     Dosage: 400 MG IN THE MORNING AND 200 MG IN THE EVENING

REACTIONS (5)
  - Rash [Recovered/Resolved]
  - Fatigue [Recovered/Resolved]
  - Headache [Recovered/Resolved]
  - Irritability [Unknown]
  - Pruritus [Recovered/Resolved]
